FAERS Safety Report 25949855 (Version 1)
Quarter: 2025Q4

REPORT INFORMATION
  Report Type: Spontaneous
  Country: US (occurrence: US)
  Receive Date: 20251022
  Receipt Date: 20251022
  Transmission Date: 20260118
  Serious: No
  Sender: SANOFI AVENTIS
  Company Number: US-SA-2025SA312212

PATIENT
  Age: 82 Year
  Sex: Male
  Weight: 93.89 kg

DRUGS (1)
  1. WAYRILZ [Suspect]
     Active Substance: RILZABRUTINIB
     Indication: Immune thrombocytopenia
     Dosage: 400 MG, Q12H
     Route: 048
     Dates: start: 20251002

REACTIONS (1)
  - Flatulence [Unknown]

NARRATIVE: CASE EVENT DATE: 20251015
